FAERS Safety Report 24190016 (Version 2)
Quarter: 2024Q3

REPORT INFORMATION
  Report Type: Spontaneous
  Country: JP (occurrence: JP)
  Receive Date: 20240808
  Receipt Date: 20240903
  Transmission Date: 20241017
  Serious: Yes (Life-Threatening, Other)
  Sender: PFIZER
  Company Number: JP-PFIZER INC-PV202400091264

PATIENT
  Age: 54 Year
  Sex: Female
  Weight: 40 kg

DRUGS (12)
  1. TALZENNA [Suspect]
     Active Substance: TALAZOPARIB TOSYLATE
     Indication: Breast cancer recurrent
     Dosage: 1 MG, DAILY
     Route: 048
     Dates: start: 20240624, end: 20240708
  2. OLAPARIB [Concomitant]
     Active Substance: OLAPARIB
     Dosage: UNK
  3. NEXIUM [Concomitant]
     Active Substance: ESOMEPRAZOLE MAGNESIUM
     Dosage: 20 MG, 1 CAPSULE AT ONE TIME
  4. ZINC [Concomitant]
     Active Substance: ZINC
     Dosage: 25 MG, 1 TABLET AT ONE TIME
  5. ONEALFA [Concomitant]
     Active Substance: ALFACALCIDOL
     Dosage: 0.5 UG, 1 TABLET AT ONE TIME
  6. CALCIUM ASPARTATE [Concomitant]
     Active Substance: CALCIUM ASPARTATE
     Dosage: 200 MG, 2 TABLETS DIVIDED INTO 2 DOSES
  7. METHADONE HYDROCHLORIDE [Concomitant]
     Active Substance: METHADONE HYDROCHLORIDE
     Dosage: 40 MG DEVIDED INTO 2 DOSES
  8. HYDROMORPHONE HYDROCHLORIDE [Concomitant]
     Active Substance: HYDROMORPHONE HYDROCHLORIDE
     Dosage: 12 MG AT ONE TIME
  9. NAPROXEN [Concomitant]
     Active Substance: NAPROXEN
     Dosage: 100 MG, 6 TABLETS DEVIDED INTO 3 DOSES
  10. SYMPROIC [Concomitant]
     Active Substance: NALDEMEDINE
     Dosage: 0.2 MG, 1 TALBET AT ONE TIME
  11. ELOBIXIBAT [Concomitant]
     Active Substance: ELOBIXIBAT
     Dosage: 15 MG, 1 TABLET AT ONE TIME
  12. LINZESS [Concomitant]
     Active Substance: LINACLOTIDE
     Dosage: 0.5 MG AT ONE TIME

REACTIONS (22)
  - Platelet count decreased [Unknown]
  - Condition aggravated [Unknown]
  - Neoplasm progression [Unknown]
  - Alanine aminotransferase increased [Unknown]
  - Mean platelet volume increased [Unknown]
  - Red blood cell count decreased [Unknown]
  - Red cell distribution width increased [Unknown]
  - Blood glucose increased [Unknown]
  - Blood magnesium increased [Unknown]
  - Protein total decreased [Unknown]
  - C-reactive protein increased [Unknown]
  - Haematocrit decreased [Unknown]
  - Haemoglobin decreased [Unknown]
  - Mean cell volume decreased [Unknown]
  - Blood calcium decreased [Unknown]
  - Blood albumin decreased [Unknown]
  - Blood urea increased [Unknown]
  - Albumin globulin ratio decreased [Unknown]
  - Eosinophil count increased [Unknown]
  - Lymphocyte percentage decreased [Unknown]
  - Mean cell haemoglobin decreased [Unknown]
  - Mean cell haemoglobin concentration decreased [Unknown]

NARRATIVE: CASE EVENT DATE: 20240701
